FAERS Safety Report 15464108 (Version 1)
Quarter: 2018Q4

REPORT INFORMATION
  Report Type: Spontaneous
  Country: PR (occurrence: PR)
  Receive Date: 20181004
  Receipt Date: 20181004
  Transmission Date: 20190204
  Serious: Yes (Death)
  Sender: FDA-Public Use
  Company Number: PR-ROCHE-2194466

PATIENT
  Age: 75 Year
  Sex: Female
  Weight: 68.1 kg

DRUGS (1)
  1. RITUXAN [Suspect]
     Active Substance: RITUXIMAB
     Indication: DIFFUSE LARGE B-CELL LYMPHOMA
     Dosage: ONGOING: UNKNOWN
     Route: 042
     Dates: start: 20180125

REACTIONS (1)
  - Death [Fatal]

NARRATIVE: CASE EVENT DATE: 20180828
